FAERS Safety Report 23740446 (Version 3)
Quarter: 2024Q2

REPORT INFORMATION
  Report Type: Spontaneous
  Country: JP (occurrence: JP)
  Receive Date: 20240415
  Receipt Date: 20240529
  Transmission Date: 20240716
  Serious: Yes (Other)
  Sender: FDA-Public Use
  Company Number: JP-JNJFOC-20240434861

PATIENT
  Age: 81 Year
  Sex: Female
  Weight: 54.3 kg

DRUGS (9)
  1. DARATUMUMAB [Suspect]
     Active Substance: DARATUMUMAB
     Indication: Plasma cell myeloma
     Dosage: 1 COURSE
     Route: 058
  2. DARATUMUMAB [Suspect]
     Active Substance: DARATUMUMAB
     Dosage: 2 COURSE
     Route: 058
  3. DARATUMUMAB [Suspect]
     Active Substance: DARATUMUMAB
     Dosage: DOSE UNKNOWN
     Route: 058
  4. LENALIDOMIDE [Suspect]
     Active Substance: LENALIDOMIDE
     Indication: Plasma cell myeloma
     Dosage: DOSE UNKNOWN
     Route: 048
  5. LENALIDOMIDE [Suspect]
     Active Substance: LENALIDOMIDE
     Dosage: 2 COURSE
     Route: 048
  6. LENALIDOMIDE [Suspect]
     Active Substance: LENALIDOMIDE
     Dosage: DOSE UNKNOWN
     Route: 048
  7. DEXAMETHASONE [Suspect]
     Active Substance: DEXAMETHASONE
     Indication: Plasma cell myeloma
     Dosage: 1 COURSE
     Route: 065
  8. DEXAMETHASONE [Suspect]
     Active Substance: DEXAMETHASONE
     Dosage: 2 COURSE
     Route: 065
  9. DEXAMETHASONE [Suspect]
     Active Substance: DEXAMETHASONE
     Dosage: DOSE UNKNOWN
     Route: 065

REACTIONS (3)
  - Deep vein thrombosis [Unknown]
  - Neutropenia [Unknown]
  - Rash [Unknown]
